FAERS Safety Report 6792570-3 (Version None)
Quarter: 2010Q2

REPORT INFORMATION
  Report Type: 
  Country: None (occurrence: None)
  Receive Date: 20100624
  Receipt Date: 20080819
  Transmission Date: 20101027
  Serious: No
  Sender: FDA-Public Use
  Company Number: US-PFIZER INC-2008069300

PATIENT
  Age: 62 Year
  Sex: Male

DRUGS (5)
  1. CADUET [Suspect]
     Indication: HYPERTENSION
     Dates: start: 20070101
  2. LUNESTA [Suspect]
     Indication: INSOMNIA
     Route: 048
     Dates: start: 20070101, end: 20080101
  3. NORVASC [Concomitant]
  4. ACETYLSALICYLIC ACID [Concomitant]
  5. TOPROL-XL [Concomitant]

REACTIONS (3)
  - ALLERGY TEST POSITIVE [None]
  - PRURITUS [None]
  - RASH [None]
